FAERS Safety Report 9989319 (Version 2)
Quarter: 2014Q2

REPORT INFORMATION
  Report Type: Spontaneous
  Country: IT (occurrence: IT)
  Receive Date: 20140310
  Receipt Date: 20140421
  Transmission Date: 20141212
  Serious: Yes (Life-Threatening)
  Sender: FDA-Public Use
  Company Number: IT-SA-2014SA025516

PATIENT
  Age: 71 Year
  Sex: Female

DRUGS (5)
  1. ARAVA [Suspect]
     Indication: RHEUMATOID ARTHRITIS
     Route: 048
  2. METHYLPREDNISOLONE [Suspect]
     Indication: RHEUMATOID ARTHRITIS
     Route: 048
  3. ENBREL [Suspect]
     Indication: RHEUMATOID ARTHRITIS
     Route: 058
  4. SIRDALUD [Concomitant]
     Indication: MUSCLE RELAXANT THERAPY
     Dosage: STRENGTH: 2 MG
     Route: 048
  5. TARGIN [Concomitant]
     Indication: PAIN
     Dosage: STRENGTH: 5 MG
     Route: 048

REACTIONS (7)
  - Hypoacusis [Unknown]
  - Arthralgia [Unknown]
  - Bone pain [Unknown]
  - Cough [Unknown]
  - Meningitis pneumococcal [Unknown]
  - Vomiting [Unknown]
  - C-reactive protein increased [Unknown]
